FAERS Safety Report 14264756 (Version 2)
Quarter: 2017Q4

REPORT INFORMATION
  Report Type: Spontaneous
  Country: RU (occurrence: RU)
  Receive Date: 20171208
  Receipt Date: 20171228
  Transmission Date: 20180321
  Serious: Yes (Death, Other)
  Sender: FDA-Public Use
  Company Number: RU-ALEXION PHARMACEUTICALS INC.-A201713485

PATIENT
  Age: 40 Year
  Sex: Female

DRUGS (1)
  1. SOLIRIS [Suspect]
     Active Substance: ECULIZUMAB
     Indication: ATYPICAL HAEMOLYTIC URAEMIC SYNDROME
     Dosage: 900 MG, UNK
     Route: 042
     Dates: start: 20171103

REACTIONS (8)
  - Atrial fibrillation [Fatal]
  - Agranulocytosis [Fatal]
  - Thrombotic microangiopathy [Fatal]
  - Vasculitis [Fatal]
  - Cushingoid [Fatal]
  - Lupus nephritis [Fatal]
  - Nephrotic syndrome [Fatal]
  - Hydrothorax [Fatal]
